FAERS Safety Report 5491625-3 (Version None)
Quarter: 2007Q4

REPORT INFORMATION
  Report Type: 
  Country: None (occurrence: None)
  Receive Date: 20071019
  Receipt Date: 20071019
  Transmission Date: 20080405
  Serious: Yes (Other)
  Sender: FDA-Public Use
  Company Number: None

PATIENT
  Age: 28 Year
  Sex: Male

DRUGS (25)
  1. ALLOPURINOL [Suspect]
     Dates: start: 20060603, end: 20060622
  2. CRESTOR [Concomitant]
  3. LABETALOL HCL [Concomitant]
  4. DEPAKOTE [Concomitant]
  5. GAMIMUNE [Concomitant]
  6. METHADONE HCL [Concomitant]
  7. SYNTHROID [Concomitant]
  8. VALIUM [Concomitant]
  9. PREDNISONE [Concomitant]
  10. VALTREX [Concomitant]
  11. RISPERDAL [Concomitant]
  12. PRILOSEC [Concomitant]
  13. RANITIDINE [Concomitant]
  14. COLACE [Concomitant]
  15. CLONIDINE [Concomitant]
  16. NORVASC [Concomitant]
  17. HYDRALAZINE HCL [Concomitant]
  18. METOPROLOL [Concomitant]
  19. MAG OXIDE [Concomitant]
  20. POTASSIUM CHLORIDE [Concomitant]
  21. URSODIAL [Concomitant]
  22. THERA SULFATE [Concomitant]
  23. LASIX [Concomitant]
  24. TYROSYL [Concomitant]
  25. ULTRAM [Concomitant]

REACTIONS (9)
  - BIOPSY LIVER ABNORMAL [None]
  - BLOOD PRESSURE INCREASED [None]
  - CHOLESTASIS [None]
  - DRUG HYPERSENSITIVITY [None]
  - GRANULOMATOUS LIVER DISEASE [None]
  - HEPATOCELLULAR DAMAGE [None]
  - INFECTION [None]
  - LIVER INJURY [None]
  - PROTEINURIA [None]
